FAERS Safety Report 4532822-0 (Version None)
Quarter: 2004Q4

REPORT INFORMATION
  Report Type: 
  Country: None (occurrence: None)
  Receive Date: 20041220
  Receipt Date: 20041220
  Transmission Date: 20050328
  Serious: Yes (Death)
  Sender: FDA-Public Use
  Company Number: None

PATIENT
  Age: 24 Year
  Sex: Female
  Weight: 58.9676 kg

DRUGS (2)
  1. ORTHO EVRA [Suspect]
     Indication: MENSTRUATION IRREGULAR
     Dosage: ONE PATCH   7 DAYS   TOPICAL
     Route: 061
     Dates: start: 20040516, end: 20040904
  2. ORTHO EVRA [Suspect]

REACTIONS (1)
  - PULMONARY EMBOLISM [None]
